FAERS Safety Report 22077552 (Version 4)
Quarter: 2024Q1

REPORT INFORMATION
  Report Type: Spontaneous
  Country: US (occurrence: US)
  Receive Date: 20230309
  Receipt Date: 20240105
  Transmission Date: 20240410
  Serious: No
  Sender: FDA-Public Use
  Company Number: US-BRISTOL-MYERS SQUIBB COMPANY-2023-033570

PATIENT
  Age: 77 Year
  Sex: Male

DRUGS (2)
  1. REVLIMID [Suspect]
     Active Substance: LENALIDOMIDE
     Indication: Plasma cell myeloma
     Route: 048
     Dates: start: 202301
  2. REVLIMID [Suspect]
     Active Substance: LENALIDOMIDE
     Route: 048

REACTIONS (9)
  - Fatigue [Unknown]
  - Lethargy [Unknown]
  - Asthenia [Unknown]
  - Joint swelling [Unknown]
  - Insomnia [Unknown]
  - Arthralgia [Unknown]
  - Peripheral swelling [Unknown]
  - Bone pain [Unknown]
  - Cough [Unknown]

NARRATIVE: CASE EVENT DATE: 20230307
